FAERS Safety Report 16931380 (Version 1)
Quarter: 2019Q4

REPORT INFORMATION
  Report Type: Spontaneous
  Country: GB (occurrence: GB)
  Receive Date: 20191017
  Receipt Date: 20191017
  Transmission Date: 20200122
  Serious: Yes (Life-Threatening)
  Sender: FDA-Public Use
  Company Number: GB-MYLANLABS-2019M1098004

PATIENT
  Age: 56 Year
  Sex: Male
  Weight: 77.7 kg

DRUGS (10)
  1. MONOMIL XL [Concomitant]
     Active Substance: ISOSORBIDE MONONITRATE
  2. FEBUXOSTAT. [Suspect]
     Active Substance: FEBUXOSTAT
     Indication: GOUT
     Dosage: 80 MILLIGRAM
     Route: 048
     Dates: start: 20181010, end: 20190812
  3. BISOPROLOL [Concomitant]
     Active Substance: BISOPROLOL
  4. ACETYLSALICYLIC ACID [Concomitant]
     Active Substance: ASPIRIN
  5. CLOPIDOGREL [Concomitant]
     Active Substance: CLOPIDOGREL BISULFATE
  6. ATORVASTATIN [Concomitant]
     Active Substance: ATORVASTATIN
  7. LANSOPRAZOLE. [Concomitant]
     Active Substance: LANSOPRAZOLE
  8. FOSTAIR [Concomitant]
     Active Substance: BECLOMETHASONE\FORMOTEROL
  9. SALAMOL                            /00139501/ [Concomitant]
  10. RAMIPRIL. [Concomitant]
     Active Substance: RAMIPRIL

REACTIONS (2)
  - Angina unstable [Recovered/Resolved]
  - Arterial stenosis [Recovered/Resolved]

NARRATIVE: CASE EVENT DATE: 20190516
